FAERS Safety Report 6823444-7 (Version None)
Quarter: 2010Q3

REPORT INFORMATION
  Report Type: 
  Country: None (occurrence: None)
  Receive Date: 20100708
  Receipt Date: 20100624
  Transmission Date: 20110219
  Serious: Yes (Death, Hospitalization, Other)
  Sender: FDA-Public Use
  Company Number: PHEH2008US09962

PATIENT
  Sex: Female

DRUGS (16)
  1. ZOMETA [Suspect]
  2. MULTI-VITAMINS [Concomitant]
  3. CALCIUM CARBONATE [Concomitant]
  4. DEXAMETHASONE [Concomitant]
  5. ADRIAMYCIN PFS [Concomitant]
     Dosage: UNK
  6. CYTOXAN [Concomitant]
     Dosage: UNK
  7. THIOPENTAL SODIUM [Concomitant]
     Dosage: UNK
  8. TAMOXIFEN CITRATE [Concomitant]
     Dosage: UNK
  9. METHOTREXATE [Concomitant]
     Dosage: UNK
  10. DECADRON [Concomitant]
     Dosage: UNK
  11. PEPCID [Concomitant]
     Dosage: UNK
  12. HYDRODIURIL [Concomitant]
     Dosage: UNK
  13. AVASTIN [Concomitant]
     Dosage: UNK
  14. ALOXI [Concomitant]
     Dosage: UNK
  15. NAVELBINE [Concomitant]
     Dosage: UNK
  16. RADIATION THERAPY [Concomitant]
     Dosage: UNK

REACTIONS (27)
  - ANXIETY [None]
  - ARTHRALGIA [None]
  - BLOOD ALKALINE PHOSPHATASE INCREASED [None]
  - BLOOD GLUCOSE INCREASED [None]
  - BLOOD LACTATE DEHYDROGENASE INCREASED [None]
  - BREAST CANCER [None]
  - BREAST CANCER METASTATIC [None]
  - BRONCHITIS [None]
  - CARCINOEMBRYONIC ANTIGEN INCREASED [None]
  - CONFUSIONAL STATE [None]
  - DECREASED INTEREST [None]
  - DEPRESSED LEVEL OF CONSCIOUSNESS [None]
  - DIZZINESS [None]
  - DYSARTHRIA [None]
  - GAIT DISTURBANCE [None]
  - GENERAL PHYSICAL HEALTH DETERIORATION [None]
  - HEADACHE [None]
  - HYDROCEPHALUS [None]
  - JOINT SWELLING [None]
  - MENINGITIS [None]
  - OSTEONECROSIS OF JAW [None]
  - PAIN [None]
  - PLEURAL EFFUSION [None]
  - TOOTH EXTRACTION [None]
  - UNRESPONSIVE TO STIMULI [None]
  - UPPER RESPIRATORY TRACT INFECTION [None]
  - VOMITING [None]
